FAERS Safety Report 25166789 (Version 1)
Quarter: 2025Q2

REPORT INFORMATION
  Report Type: Spontaneous
  Country: GB (occurrence: GB)
  Receive Date: 20250407
  Receipt Date: 20250407
  Transmission Date: 20250717
  Serious: Yes (Other)
  Sender: MYLAN
  Company Number: None

PATIENT
  Age: 46 Year
  Sex: Female

DRUGS (8)
  1. PREGABALIN [Suspect]
     Active Substance: PREGABALIN
     Indication: Pain in jaw
     Dosage: 200 MILLIGRAM, BID (200MG TWICE A DAY)
     Dates: start: 202402, end: 2025
  2. PREGABALIN [Suspect]
     Active Substance: PREGABALIN
     Dosage: 200 MILLIGRAM, BID (200MG TWICE A DAY)
     Route: 065
     Dates: start: 202402, end: 2025
  3. PREGABALIN [Suspect]
     Active Substance: PREGABALIN
     Dosage: 200 MILLIGRAM, BID (200MG TWICE A DAY)
     Route: 065
     Dates: start: 202402, end: 2025
  4. PREGABALIN [Suspect]
     Active Substance: PREGABALIN
     Dosage: 200 MILLIGRAM, BID (200MG TWICE A DAY)
     Dates: start: 202402, end: 2025
  5. NAPROXEN [Concomitant]
     Active Substance: NAPROXEN
     Indication: Pain in jaw
  6. NAPROXEN [Concomitant]
     Active Substance: NAPROXEN
     Route: 065
  7. NAPROXEN [Concomitant]
     Active Substance: NAPROXEN
     Route: 065
  8. NAPROXEN [Concomitant]
     Active Substance: NAPROXEN

REACTIONS (1)
  - Lip blister [Recovered/Resolved]

NARRATIVE: CASE EVENT DATE: 20241201
